FAERS Safety Report 5644294-3 (Version None)
Quarter: 2008Q1

REPORT INFORMATION
  Report Type: 
  Country: None (occurrence: None)
  Receive Date: 20080227
  Receipt Date: 20080213
  Transmission Date: 20080703
  Serious: No
  Sender: FDA-Public Use
  Company Number: DSU-2008-00207

PATIENT
  Sex: Male

DRUGS (1)
  1. WELCHOL [Suspect]
     Indication: HYPERCHOLESTEROLAEMIA
     Dosage: 3750 MG (1875 MG, BID) ,PER ORAL
     Route: 048

REACTIONS (2)
  - DYSPHAGIA [None]
  - FOREIGN BODY TRAUMA [None]
